FAERS Safety Report 8080650-4 (Version None)
Quarter: 2012Q1

REPORT INFORMATION
  Report Type: 
  Country: None (occurrence: None)
  Receive Date: 20120130
  Receipt Date: 20120119
  Transmission Date: 20120608
  Serious: Yes (Hospitalization)
  Sender: FDA-Public Use
  Company Number: PHEH2011US06242

PATIENT
  Sex: Male

DRUGS (1)
  1. EXJADE [Suspect]
     Indication: NEOPLASM
     Dosage: 2500 MG, QD
     Route: 048
     Dates: start: 20100326

REACTIONS (1)
  - FEBRILE NEUTROPENIA [None]
